FAERS Safety Report 18333801 (Version 1)
Quarter: 2020Q3

REPORT INFORMATION
  Report Type: Spontaneous
  Country: US (occurrence: US)
  Receive Date: 20200930
  Receipt Date: 20200930
  Transmission Date: 20201103
  Serious: No
  Sender: FDA-Public Use
  Company Number: None

PATIENT
  Sex: Male

DRUGS (12)
  1. VITAMIN B12 [Concomitant]
     Active Substance: CYANOCOBALAMIN
  2. WELLBUTRIN [Concomitant]
     Active Substance: BUPROPION HYDROCHLORIDE
  3. IRON [Concomitant]
     Active Substance: IRON
  4. LIPITOR [Concomitant]
     Active Substance: ATORVASTATIN CALCIUM
  5. VALSARTAN. [Concomitant]
     Active Substance: VALSARTAN
  6. KEPPRA [Concomitant]
     Active Substance: LEVETIRACETAM
  7. GLATIRAMER [Suspect]
     Active Substance: GLATIRAMER
     Indication: MULTIPLE SCLEROSIS
     Dosage: ?          OTHER FREQUENCY:3 TIMES A WEEK;?
     Route: 058
     Dates: start: 20191002
  8. CARVEDILOL. [Concomitant]
     Active Substance: CARVEDILOL
  9. FOLIC ACID. [Concomitant]
     Active Substance: FOLIC ACID
  10. LEXAPRO [Concomitant]
     Active Substance: ESCITALOPRAM OXALATE
  11. ALPRAZOLAM. [Concomitant]
     Active Substance: ALPRAZOLAM
  12. TRUVADA [Concomitant]
     Active Substance: EMTRICITABINE\TENOFOVIR DISOPROXIL FUMARATE

REACTIONS (4)
  - Blindness [None]
  - Fatigue [None]
  - Vertigo [None]
  - Transient ischaemic attack [None]
